FAERS Safety Report 10383383 (Version 1)
Quarter: 2014Q3

REPORT INFORMATION
  Report Type: Spontaneous
  Country: US (occurrence: US)
  Receive Date: 20140814
  Receipt Date: 20140814
  Transmission Date: 20150326
  Serious: Yes (Life-Threatening, Hospitalization)
  Sender: FDA-Public Use
  Company Number: US-RANBAXY-2014US-84125

PATIENT
  Age: 66 Year
  Sex: Male
  Weight: 112 kg

DRUGS (6)
  1. ALTEPASE [Interacting]
     Active Substance: ALTEPLASE
     Indication: ISCHAEMIC STROKE
     Dosage: 9 MG, SINGLE OVER 1 MINUTE
     Route: 040
  2. LISINOPRIL. [Suspect]
     Active Substance: LISINOPRIL
     Indication: PRODUCT USED FOR UNKNOWN INDICATION
     Dosage: 40 MG, DAILY
     Route: 048
  3. SPIRONOLACTONE. [Concomitant]
     Active Substance: SPIRONOLACTONE
     Indication: PRODUCT USED FOR UNKNOWN INDICATION
     Dosage: 25 MG, BID
     Route: 048
  4. ALTEPASE [Interacting]
     Active Substance: ALTEPLASE
     Dosage: 81MG INFUSION OVER 60 MIN
     Route: 042
  5. ASPIRIN. [Concomitant]
     Active Substance: ASPIRIN
     Indication: PRODUCT USED FOR UNKNOWN INDICATION
     Dosage: 81 MG, DAILY
     Route: 048
  6. AMLODIPINE [Concomitant]
     Active Substance: AMLODIPINE BESYLATE
     Indication: PRODUCT USED FOR UNKNOWN INDICATION
     Dosage: 10 MG, DAILY
     Route: 048

REACTIONS (3)
  - Drug interaction [Recovered/Resolved]
  - Angioedema [Recovered/Resolved]
  - Lip swelling [None]
